FAERS Safety Report 12991585 (Version 1)
Quarter: 2016Q4

REPORT INFORMATION
  Report Type: Spontaneous
  Country: NL (occurrence: NL)
  Receive Date: 20161201
  Receipt Date: 20161201
  Transmission Date: 20170207
  Serious: Yes (Other)
  Sender: FDA-Public Use
  Company Number: NL-PFIZER INC-2015254379

PATIENT
  Age: 64 Year
  Sex: Female

DRUGS (5)
  1. SOMAVERT [Suspect]
     Active Substance: PEGVISOMANT
     Indication: ACROMEGALY
     Dosage: 50 MG, 3X/WEEK
     Route: 058
     Dates: start: 20080218, end: 20080619
  2. SOMAVERT [Suspect]
     Active Substance: PEGVISOMANT
     Dosage: 50 MG, 2X/WEEK
     Route: 058
     Dates: start: 20080620, end: 20120723
  3. SOMAVERT [Suspect]
     Active Substance: PEGVISOMANT
     Dosage: 50 MG, 2X/WEEK
     Dates: start: 20130326, end: 20150302
  4. SOMAVERT [Suspect]
     Active Substance: PEGVISOMANT
     Dosage: 50 MG, 2X/WEEK
     Dates: start: 20120724
  5. SOMAVERT [Suspect]
     Active Substance: PEGVISOMANT
     Dosage: 50 MG, 1X/WEEK
     Route: 058
     Dates: start: 20150303

REACTIONS (3)
  - Cerebral infarction [Unknown]
  - Hemiparesis [Unknown]
  - Off label use [Not Recovered/Not Resolved]

NARRATIVE: CASE EVENT DATE: 20080218
